FAERS Safety Report 6908107-1 (Version None)
Quarter: 2010Q3

REPORT INFORMATION
  Report Type: 
  Country: None (occurrence: None)
  Receive Date: 20100805
  Receipt Date: 20100802
  Transmission Date: 20110219
  Serious: Yes (Other)
  Sender: FDA-Public Use
  Company Number: ES-SANOFI-AVENTIS-2010SA045188

PATIENT
  Age: 43 Year
  Sex: Female
  Weight: 75 kg

DRUGS (7)
  1. TAXOTERE [Suspect]
     Route: 041
     Dates: start: 20100212, end: 20100212
  2. FORTECORTIN [Concomitant]
     Route: 040
  3. ONDANSETRON [Concomitant]
     Route: 048
  4. PARAPLATIN [Concomitant]
  5. POLARAMINE [Concomitant]
     Route: 042
  6. RANITIDINA [Concomitant]
     Route: 042
     Dates: start: 20100212, end: 20100212
  7. URBASON [Concomitant]
     Route: 048
     Dates: start: 20100212, end: 20100212

REACTIONS (6)
  - BACK PAIN [None]
  - CHEST DISCOMFORT [None]
  - FLUSHING [None]
  - HEART RATE INCREASED [None]
  - HYPERTENSION [None]
  - OXYGEN SATURATION DECREASED [None]
